FAERS Safety Report 16706068 (Version 1)
Quarter: 2019Q4

REPORT INFORMATION
  Report Type: Spontaneous
  Country: US (occurrence: US)
  Receive Date: 20190814
  Receipt Date: 20190814
  Transmission Date: 20200122
  Serious: Yes (Hospitalization)
  Sender: FDA-Public Use
  Company Number: None

PATIENT
  Age: 85 Year
  Sex: Female

DRUGS (6)
  1. CARTIA XT CAP 120/24 HR [Concomitant]
  2. BRILINTA TAB 90 MG [Concomitant]
  3. LEVETIRACETA TAB 250 MG [Concomitant]
  4. ROSUVASTATIN TAB 10 MG [Concomitant]
  5. REPATHA [Suspect]
     Active Substance: EVOLOCUMAB
     Indication: PRODUCT USED FOR UNKNOWN INDICATION
     Dosage: ?          OTHER FREQUENCY:EVERY 2 WEEKS;?
     Route: 058
     Dates: start: 20180326
  6. CYANOCOBALAM INJ 1000 MG [Concomitant]

REACTIONS (2)
  - Hospitalisation [None]
  - Therapy change [None]
